FAERS Safety Report 10388897 (Version 1)
Quarter: 2014Q1

REPORT INFORMATION
  Report Type: Spontaneous
  Country: US (occurrence: None)
  Receive Date: 20140306
  Receipt Date: 20140306
  Transmission Date: 20141002
  Serious: Yes (Other)
  Sender: FDA-Public Use
  Company Number: 163-21880-13070892

PATIENT
  Age: 57 Year
  Sex: Male
  Weight: 81.6 kg

DRUGS (9)
  1. REVLIMID (LENALIDOMIDE) (25 MILLIGRAM, CAPSULES) [Suspect]
     Indication: PLASMA CELL MYELOMA
     Route: 048
     Dates: start: 201206
  2. FUROSEMIDE [Concomitant]
  3. LYRICA (PREGABALIN) [Concomitant]
  4. ONDANSETRON HCL [Concomitant]
  5. ORPHENADRINE [Concomitant]
  6. ALLOPURINOL [Concomitant]
  7. CYANOCOBALAMIN [Concomitant]
  8. COLCRYS (COLCHICINE) [Concomitant]
  9. VELCADE (BORTEZOMIB) [Concomitant]

REACTIONS (2)
  - Thrombosis [None]
  - Rash [None]
